FAERS Safety Report 7715846-1 (Version None)
Quarter: 2011Q3

REPORT INFORMATION
  Report Type: 
  Country: None (occurrence: None)
  Receive Date: 20110829
  Receipt Date: 20110829
  Transmission Date: 20111222
  Serious: Yes (Life-Threatening, Other)
  Sender: FDA-Public Use
  Company Number: None

PATIENT
  Sex: Female
  Weight: 74.842 kg

DRUGS (1)
  1. DEPO-PROVERA [Suspect]

REACTIONS (7)
  - PAIN [None]
  - HEADACHE [None]
  - ASTHENIA [None]
  - HEMIPLEGIA [None]
  - VERTIGO [None]
  - HYPOAESTHESIA [None]
  - CEREBROVASCULAR ACCIDENT [None]
